FAERS Safety Report 9739534 (Version 1)
Quarter: 2013Q4

REPORT INFORMATION
  Report Type: Spontaneous
  Country: US (occurrence: US)
  Receive Date: 20131209
  Receipt Date: 20131209
  Transmission Date: 20140711
  Serious: No
  Sender: FDA-Public Use
  Company Number: US-009507513-1312USA003005

PATIENT
  Age: 52 Year
  Sex: Female

DRUGS (3)
  1. NASONEX [Suspect]
     Indication: ASTHMA
     Dosage: 4 DF (2 SPRAYS IN EACH NOSTRIL), HS
     Route: 045
     Dates: start: 201012
  2. NASONEX [Suspect]
     Indication: SLEEP APNOEA SYNDROME
  3. ADVAIR [Concomitant]

REACTIONS (3)
  - Headache [Not Recovered/Not Resolved]
  - Drug dose omission [Unknown]
  - Device issue [Unknown]
